FAERS Safety Report 23668856 (Version 6)
Quarter: 2024Q3

REPORT INFORMATION
  Report Type: Spontaneous
  Country: CA (occurrence: CA)
  Receive Date: 20240325
  Receipt Date: 20240815
  Transmission Date: 20241017
  Serious: Yes (Hospitalization, Other)
  Sender: PFIZER
  Company Number: CA-PFIZER INC-202200634003

PATIENT
  Age: 47 Year
  Sex: Female
  Weight: 97 kg

DRUGS (6)
  1. RUXIENCE [Suspect]
     Active Substance: RITUXIMAB-PVVR
     Indication: Pemphigus
     Dosage: 500 MG, DAY 1 AND DAY 15
     Route: 042
     Dates: start: 20220517, end: 20220603
  2. RUXIENCE [Suspect]
     Active Substance: RITUXIMAB-PVVR
     Dosage: 500 MG, DAY 1 ONLY ONCE EVERY 6 MONTHS
     Route: 042
     Dates: start: 20230427, end: 20230427
  3. RUXIENCE [Suspect]
     Active Substance: RITUXIMAB-PVVR
     Dosage: 500 MG, ONLY 1 DOSE (SUBSEQUENT DAY 1)
     Route: 042
     Dates: start: 20231115, end: 20231115
  4. RUXIENCE [Suspect]
     Active Substance: RITUXIMAB-PVVR
     Dosage: 500 MG, DAY 1 RETREATMENT (FOR ONE DOSE)
     Route: 042
     Dates: start: 20240812, end: 20240812
  5. CELLCEPT [Concomitant]
     Active Substance: MYCOPHENOLATE MOFETIL
     Dosage: 1 DF
  6. METFORMIN [Concomitant]
     Active Substance: METFORMIN HYDROCHLORIDE
     Dosage: 1 DF

REACTIONS (6)
  - Uterine cyst [Recovering/Resolving]
  - COVID-19 [Recovered/Resolved]
  - Procedural pain [Not Recovered/Not Resolved]
  - Weight decreased [Unknown]
  - Off label use [Unknown]
  - Incorrect product administration duration [Unknown]

NARRATIVE: CASE EVENT DATE: 20230101
